FAERS Safety Report 24731418 (Version 1)
Quarter: 2024Q4

REPORT INFORMATION
  Report Type: Spontaneous
  Country: ZA (occurrence: ZA)
  Receive Date: 20241213
  Receipt Date: 20241213
  Transmission Date: 20250115
  Serious: Yes (Other)
  Sender: PFIZER
  Company Number: ZA-PFIZER INC-PV202400161275

PATIENT
  Age: 3 Year
  Sex: Female

DRUGS (4)
  1. METHOTREXATE SODIUM [Suspect]
     Active Substance: METHOTREXATE SODIUM
     Indication: Juvenile idiopathic arthritis
     Dosage: 10 MG, WEEKLY
     Route: 058
     Dates: start: 202110
  2. CHLOROQUINE [Suspect]
     Active Substance: CHLOROQUINE
     Indication: Juvenile idiopathic arthritis
     Dosage: MONDAY TO FRIDAY
     Dates: start: 202110
  3. PREDNISONE [Suspect]
     Active Substance: PREDNISONE
     Indication: Juvenile idiopathic arthritis
     Dosage: INTERMITENT PULSES
     Dates: start: 202110
  4. IBUPROFEN [Concomitant]
     Active Substance: IBUPROFEN
     Indication: Juvenile idiopathic arthritis
     Dosage: PRN
     Dates: start: 202110

REACTIONS (5)
  - Condition aggravated [Unknown]
  - Aspartate aminotransferase increased [Unknown]
  - C-reactive protein increased [Unknown]
  - White blood cell count decreased [Unknown]
  - Product administration error [Unknown]

NARRATIVE: CASE EVENT DATE: 20220516
